FAERS Safety Report 6249558-0 (Version None)
Quarter: 2009Q2

REPORT INFORMATION
  Report Type: 
  Country: None (occurrence: None)
  Receive Date: 20090625
  Receipt Date: 20090625
  Transmission Date: 20091009
  Serious: Yes (Hospitalization)
  Sender: FDA-Public Use
  Company Number: None

PATIENT
  Age: 54 Year
  Sex: Female
  Weight: 70.3075 kg

DRUGS (15)
  1. ALLOPURINOL [Suspect]
     Dosage: 150MG ONCE DAILY PO
     Route: 048
  2. SENNA-GEN [Concomitant]
  3. FUROSEMIDE [Concomitant]
  4. TEMAZEPAM [Concomitant]
  5. METOPROLOL [Concomitant]
  6. PLAVIX [Concomitant]
  7. SIMVASTATIN [Concomitant]
  8. SERTRALINE [Concomitant]
  9. ASPIRIN [Concomitant]
  10. PROTONIX [Concomitant]
  11. DOCUSATE [Concomitant]
  12. POTASSIUM GLUCONATE TAB [Concomitant]
  13. ALBUTEROL [Concomitant]
  14. ALLOPURINOL [Concomitant]
  15. ALTACE [Concomitant]

REACTIONS (2)
  - ACUTE TONSILLITIS [None]
  - PNEUMONIA [None]
